FAERS Safety Report 14714982 (Version 1)
Quarter: 2018Q2

REPORT INFORMATION
  Report Type: Spontaneous
  Country: US (occurrence: US)
  Receive Date: 20180404
  Receipt Date: 20180404
  Transmission Date: 20180711
  Serious: No
  Sender: FDA-Public Use
  Company Number: US-009507513-1804USA000811

PATIENT
  Sex: Female

DRUGS (5)
  1. CYTOXAN [Concomitant]
     Active Substance: CYCLOPHOSPHAMIDE
  2. EMEND [Suspect]
     Active Substance: APREPITANT
     Indication: BREAST CANCER
     Dosage: UNK
     Route: 042
     Dates: start: 201803, end: 201803
  3. DOXORUBICIN [Concomitant]
     Active Substance: DOXORUBICIN
  4. ALOXI [Concomitant]
     Active Substance: PALONOSETRON HYDROCHLORIDE
  5. NEULASTA [Concomitant]
     Active Substance: PEGFILGRASTIM

REACTIONS (2)
  - Headache [Recovering/Resolving]
  - Product use in unapproved indication [Unknown]

NARRATIVE: CASE EVENT DATE: 201803
